FAERS Safety Report 19962792 (Version 1)
Quarter: 2021Q4

REPORT INFORMATION
  Report Type: Spontaneous
  Country: FR (occurrence: FR)
  Receive Date: 20211018
  Receipt Date: 20211018
  Transmission Date: 20220303
  Serious: Yes (Congenital Anomaly, Other)
  Sender: FDA-Public Use
  Company Number: FR-ABBVIE-21K-056-4118937-00

PATIENT
  Sex: Male

DRUGS (4)
  1. VALPROATE SODIUM [Suspect]
     Active Substance: VALPROATE SODIUM
     Indication: Maternal exposure timing unspecified
     Route: 064
  2. VALPROATE SODIUM [Suspect]
     Active Substance: VALPROATE SODIUM
     Indication: Maternal exposure timing unspecified
     Route: 064
  3. ZONISAMIDE [Suspect]
     Active Substance: ZONISAMIDE
     Indication: Product used for unknown indication
     Route: 064
     Dates: start: 2010, end: 20110616
  4. LEVETIRACETAM [Suspect]
     Active Substance: LEVETIRACETAM
     Indication: Product used for unknown indication
     Route: 064
     Dates: start: 20100701, end: 20110616

REACTIONS (32)
  - Phimosis [Unknown]
  - Foetal exposure during pregnancy [Unknown]
  - Limb malformation [Unknown]
  - Heart disease congenital [Unknown]
  - Inguinal hernia [Unknown]
  - Scoliosis [Unknown]
  - Visual impairment [Unknown]
  - Behaviour disorder [Unknown]
  - Attention deficit hyperactivity disorder [Unknown]
  - Impulsive behaviour [Unknown]
  - Language disorder [Unknown]
  - Speech disorder [Unknown]
  - Social (pragmatic) communication disorder [Unknown]
  - Motor dysfunction [Unknown]
  - Psychomotor skills impaired [Unknown]
  - Dysmorphism [Unknown]
  - Foot deformity [Unknown]
  - Ventricular septal defect [Unknown]
  - Bruxism [Unknown]
  - Psychomotor hyperactivity [Unknown]
  - Congenital foot malformation [Unknown]
  - Congenital cutis laxa [Unknown]
  - Fine motor skill dysfunction [Unknown]
  - Nasopharyngitis [Unknown]
  - Ear infection [Unknown]
  - Stridor [Unknown]
  - Sleep disorder [Unknown]
  - Encopresis [Unknown]
  - Somnolence [Unknown]
  - Enuresis [Unknown]
  - Oropharyngeal discomfort [Unknown]
  - Micturition urgency [Unknown]

NARRATIVE: CASE EVENT DATE: 20110616
